FAERS Safety Report 7634453-2 (Version None)
Quarter: 2011Q3

REPORT INFORMATION
  Report Type: 
  Country: None (occurrence: None)
  Receive Date: 20110725
  Receipt Date: 20110718
  Transmission Date: 20111222
  Serious: Yes (Hospitalization)
  Sender: FDA-Public Use
  Company Number: PHHO2011TW12180

PATIENT
  Sex: Male
  Weight: 61 kg

DRUGS (4)
  1. ALFUZOSIN HCL [Concomitant]
  2. ZOLEDRONIC [Suspect]
     Indication: PROSTATE CANCER
     Dosage: 4.0 MG, UNK
     Dates: start: 20080806, end: 20110706
  3. LEUPRORELIN [Concomitant]
  4. OXYBUTYNIN [Concomitant]

REACTIONS (1)
  - OSTEONECROSIS OF JAW [None]
